FAERS Safety Report 7627041-5 (Version None)
Quarter: 2011Q3

REPORT INFORMATION
  Report Type: 
  Country: None (occurrence: None)
  Receive Date: 20110721
  Receipt Date: 20110714
  Transmission Date: 20111222
  Serious: Yes (Other)
  Sender: FDA-Public Use
  Company Number: PHHY2011IT64392

PATIENT
  Age: 36 Year
  Sex: Male

DRUGS (2)
  1. INTERFERON ALFA [Suspect]
     Dosage: UNK
  2. RIBAVIRIN [Suspect]
     Dosage: UNK

REACTIONS (7)
  - RETINAL DEGENERATION [None]
  - RETINAL DEPIGMENTATION [None]
  - CATARACT CORTICAL [None]
  - RETINAL DETACHMENT [None]
  - VOGT-KOYANAGI-HARADA SYNDROME [None]
  - CATARACT SUBCAPSULAR [None]
  - BLINDNESS [None]
